FAERS Safety Report 5366345-6 (Version None)
Quarter: 2007Q2

REPORT INFORMATION
  Report Type: 
  Country: None (occurrence: None)
  Receive Date: 20070622
  Receipt Date: 20070612
  Transmission Date: 20071010
  Serious: Yes (Death)
  Sender: FDA-Public Use
  Company Number: CA-JNJFOC-20070602917

PATIENT
  Sex: Female
  Weight: 116 kg

DRUGS (34)
  1. REMICADE [Suspect]
     Route: 042
  2. REMICADE [Suspect]
     Indication: RHEUMATOID ARTHRITIS
     Route: 042
  3. ACTOS [Concomitant]
     Indication: DIABETES MELLITUS
  4. PANTOPRAZOLE SODIUM [Concomitant]
     Indication: GASTROINTESTINAL DISORDER
  5. FLURAZEPAM [Concomitant]
     Indication: SLEEP DISORDER
  6. ACETAMINOPHEN [Concomitant]
  7. NOVO-DILTIAZEM [Concomitant]
  8. MTX [Concomitant]
  9. STATEX [Concomitant]
     Indication: PAIN
  10. FOLIC ACID [Concomitant]
  11. APO-FUROSEMIDE [Concomitant]
  12. ADVAIR DISKUS 100/50 [Concomitant]
     Route: 055
  13. SPIRIVA [Concomitant]
  14. ACTONEL [Concomitant]
  15. LANTUS [Concomitant]
  16. RIVA-GABAPENTIN [Concomitant]
  17. APO-HYDROXYZINE [Concomitant]
  18. ARISTOCORT [Concomitant]
  19. APO-CYCLOBENZAPRINE [Concomitant]
  20. MELOXICAM [Concomitant]
     Indication: ANTIINFLAMMATORY THERAPY
  21. ESTRACE [Concomitant]
  22. CALCITE [Concomitant]
     Indication: OSTEOPOROSIS
  23. VASOTEC [Concomitant]
     Indication: BLOOD PRESSURE
  24. ORACORT [Concomitant]
  25. SECARIS [Concomitant]
  26. RIVA-FLUCONAZOLE [Concomitant]
     Indication: VAGINAL INFECTION
  27. APO-AMITRIPTYLINE [Concomitant]
  28. MAXALT [Concomitant]
     Indication: MIGRAINE
  29. PRO-LORAZEPAM [Concomitant]
     Indication: NERVOUSNESS
  30. SALBUTAMOL [Concomitant]
  31. HYDROXYZINE HYDROCHLORIDE [Concomitant]
     Indication: PRURITUS
  32. NASONEX [Concomitant]
     Indication: SINUSITIS
  33. HUMALOG [Concomitant]
  34. DOCUSATE CALCIUM [Concomitant]
     Indication: ABNORMAL FAECES

REACTIONS (1)
  - DEATH [None]
